FAERS Safety Report 11100911 (Version 2)
Quarter: 2015Q2

REPORT INFORMATION
  Report Type: Spontaneous
  Country: JP (occurrence: JP)
  Receive Date: 20150508
  Receipt Date: 20150529
  Transmission Date: 20150821
  Serious: Yes (Life-Threatening, Other)
  Sender: FDA-Public Use
  Company Number: JP-AMGEN-JPNSP2015044853

PATIENT
  Age: 84 Year
  Sex: Female
  Weight: 38 kg

DRUGS (32)
  1. SULFAMETHOXAZOLE AND TRIMETHOPRIM [Concomitant]
     Active Substance: SULFAMETHOXAZOLE\TRIMETHOPRIM
     Indication: LYMPHOMA
     Dosage: 2 DF, UNK
     Route: 048
     Dates: start: 20150401
  2. ENDOXAN                            /00021101/ [Concomitant]
     Active Substance: CYCLOPHOSPHAMIDE
     Indication: LYMPHOMA
     Dosage: 580 MG, UNK
     Route: 042
     Dates: start: 20150401
  3. ASVERIN                            /00465502/ [Concomitant]
     Dosage: 60 MG, UNK
     Route: 048
  4. ENDOXAN                            /00021102/ [Concomitant]
     Active Substance: CYCLOPHOSPHAMIDE
     Indication: LYMPHOMA
     Dosage: 580 MG, UNK
     Route: 042
     Dates: start: 20150401
  5. SINGULAIR [Concomitant]
     Active Substance: MONTELUKAST SODIUM
     Dosage: 10 MG, UNK
     Route: 048
  6. ONCOVIN [Concomitant]
     Active Substance: VINCRISTINE SULFATE
     Indication: LYMPHOMA
     Dosage: 0.97 MG, UNK
     Route: 041
     Dates: start: 20150401
  7. DOXORUBICIN HYDROCHLORIDE. [Concomitant]
     Active Substance: DOXORUBICIN HYDROCHLORIDE
     Indication: LYMPHOMA
     Dosage: 30 MG, UNK
     Route: 042
     Dates: start: 20150401
  8. ISOTONIC SODIUM CHLORIDE SOLUTION [Concomitant]
     Active Substance: SODIUM CHLORIDE
     Dosage: 500 ML, UNK
     Route: 042
     Dates: start: 20150403, end: 20150405
  9. GRANISETRON HYDROCHLORIDE. [Concomitant]
     Active Substance: GRANISETRON HYDROCHLORIDE
     Indication: LYMPHOMA
     Dosage: 1 MG, UNK
     Route: 041
     Dates: start: 20150401
  10. SOLULACT S [Concomitant]
     Dosage: 1000 ML, UNK
     Route: 041
     Dates: start: 20150405
  11. SPIRONOLACTONE. [Concomitant]
     Active Substance: SPIRONOLACTONE
     Dosage: 25 MG, UNK
     Route: 048
  12. EMEND [Concomitant]
     Active Substance: APREPITANT
     Dosage: 1 DF, UNK
     Route: 048
     Dates: start: 20150401
  13. ISOTONIC SODIUM CHLORIDE SOLUTION [Concomitant]
     Active Substance: SODIUM CHLORIDE
     Dosage: 1100 ML, UNK
     Route: 042
     Dates: start: 20150406, end: 20150406
  14. SOLULACT S [Concomitant]
     Dosage: 1000 ML, UNK
     Route: 041
     Dates: start: 20150401, end: 20150401
  15. LENDORMIN [Concomitant]
     Active Substance: BROTIZOLAM
     Dosage: 0.25 MG, UNK
     Route: 048
  16. PREDNISOLONE. [Concomitant]
     Active Substance: PREDNISOLONE
     Indication: LYMPHOMA
     Dosage: 40 MG, UNK
     Route: 048
     Dates: start: 20150401, end: 20150405
  17. LASIX [Concomitant]
     Active Substance: FUROSEMIDE
     Dosage: 10 MG, UNK
     Route: 065
     Dates: start: 20150404, end: 20150405
  18. ISOTONIC SODIUM CHLORIDE SOLUTION [Concomitant]
     Active Substance: SODIUM CHLORIDE
     Dosage: 1650 ML, UNK
     Route: 042
     Dates: start: 20150401, end: 20150401
  19. ISOTONIC SODIUM CHLORIDE SOLUTION [Concomitant]
     Active Substance: SODIUM CHLORIDE
     Dosage: 1100 ML, UNK
     Route: 042
     Dates: start: 20150402, end: 20150402
  20. SOLULACT S [Concomitant]
     Dosage: 500 ML, UNK
     Route: 041
     Dates: start: 20150403, end: 20150404
  21. SOLDEM 1 [Concomitant]
     Active Substance: DEXTROSE\SODIUM CHLORIDE\SODIUM LACTATE
     Dosage: 500 ML, UNK
     Route: 041
     Dates: start: 20150401
  22. LENDORMIN [Concomitant]
     Active Substance: BROTIZOLAM
     Indication: INSOMNIA
     Dosage: 0.125 MG, UNK
     Route: 048
  23. LASIX [Concomitant]
     Active Substance: FUROSEMIDE
     Dosage: 10 MG, UNK
     Route: 065
     Dates: start: 20150401, end: 20150402
  24. LASIX [Concomitant]
     Active Substance: FUROSEMIDE
     Dosage: 10 MG, UNK
     Route: 065
     Dates: start: 20150404, end: 20150405
  25. EMEND [Concomitant]
     Active Substance: APREPITANT
     Dosage: 1 DF, UNK
     Route: 048
     Dates: start: 20150401
  26. G-LASTA [Suspect]
     Active Substance: PEGFILGRASTIM
     Indication: COLONY STIMULATING FACTOR PROPHYLAXIS
     Dosage: 3.6 MG, UNK
     Route: 058
     Dates: start: 20150403
  27. RASURITEK [Concomitant]
     Active Substance: RASBURICASE
     Dosage: 75 MG, UNK
     Route: 041
     Dates: start: 20150401
  28. SOLULACT S [Concomitant]
     Dosage: 1500 ML, UNK
     Route: 041
     Dates: start: 20150402, end: 20150402
  29. SULFAMETHOXAZOLE AND TRIMETHOPRIM [Concomitant]
     Active Substance: SULFAMETHOXAZOLE\TRIMETHOPRIM
     Dosage: 2 DF, UNK
     Route: 048
     Dates: start: 20150404
  30. LASIX [Concomitant]
     Active Substance: FUROSEMIDE
     Dosage: 10 MG, UNK
     Route: 065
     Dates: start: 20150401, end: 20150402
  31. ASVERIN                            /00465502/ [Concomitant]
     Dosage: 60 MG, UNK
     Route: 048
  32. SULPIRIDE [Concomitant]
     Active Substance: SULPIRIDE
     Dosage: 150 MG, UNK
     Route: 048

REACTIONS (1)
  - Hypoxia [Recovered/Resolved]

NARRATIVE: CASE EVENT DATE: 20150404
